FAERS Safety Report 5104326-8 (Version None)
Quarter: 2006Q3

REPORT INFORMATION
  Report Type: 
  Country: None (occurrence: None)
  Receive Date: 20060731
  Receipt Date: 20060618
  Transmission Date: 20061208
  Serious: No
  Sender: FDA-Public Use
  Company Number: 2006PV015809

PATIENT
  Age: 45 Year
  Sex: Male
  Weight: 120.2032 kg

DRUGS (4)
  1. BYETTA [Suspect]
     Indication: DIABETES MELLITUS NON-INSULIN-DEPENDENT
     Dosage: 5 MCG;BID;SC
     Route: 058
     Dates: start: 20060607
  2. GLUCOPHAGE [Concomitant]
  3. GLUCOTROL [Concomitant]
  4. ACTOS [Concomitant]

REACTIONS (3)
  - DECREASED APPETITE [None]
  - DRUG INEFFECTIVE FOR UNAPPROVED INDICATION [None]
  - ENERGY INCREASED [None]
